FAERS Safety Report 6640033-8 (Version None)
Quarter: 2010Q1

REPORT INFORMATION
  Report Type: 
  Country: None (occurrence: None)
  Receive Date: 20100318
  Receipt Date: 20100310
  Transmission Date: 20100710
  Serious: Yes (Other)
  Sender: FDA-Public Use
  Company Number: PHHY2010DE15205

PATIENT
  Sex: Female

DRUGS (1)
  1. EXTAVIA [Suspect]
     Dosage: 1 ML PER 2 DAY
     Route: 058
     Dates: start: 20090309

REACTIONS (2)
  - PANIC ATTACK [None]
  - TACHYCARDIA [None]
